FAERS Safety Report 5118673-7 (Version None)
Quarter: 2006Q4

REPORT INFORMATION
  Report Type: 
  Country: None (occurrence: None)
  Receive Date: 20061002
  Receipt Date: 20060922
  Transmission Date: 20070319
  Serious: Yes (Hospitalization)
  Sender: FDA-Public Use
  Company Number: DE-MERCK-0609DEU00087

PATIENT
  Age: 27 Year
  Sex: Male

DRUGS (12)
  1. CANCIDAS [Suspect]
     Indication: SYSTEMIC CANDIDA
     Route: 042
  2. CANCIDAS [Suspect]
     Route: 042
  3. CYTARABINE [Concomitant]
     Indication: ACUTE MYELOID LEUKAEMIA
     Route: 065
  4. MITOXANTRONE HYDROCHLORIDE [Concomitant]
     Indication: ACUTE MYELOID LEUKAEMIA
     Route: 065
  5. BLINDED THERAPY [Suspect]
     Indication: PROPHYLAXIS
     Route: 065
  6. AMPHOTERICIN B [Concomitant]
     Indication: PROPHYLAXIS
     Route: 065
  7. CEFTRIAXONE SODIUM [Concomitant]
     Route: 065
  8. GENTAMICIN [Concomitant]
     Route: 065
  9. PIPERACILLIN SODIUM AND TAZOBACTAM SODIUM [Concomitant]
     Route: 065
  10. VANCOMYCIN [Concomitant]
     Route: 065
  11. IMIPENEM [Concomitant]
     Route: 065
  12. FLUCONAZOLE [Suspect]
     Indication: SYSTEMIC CANDIDA
     Route: 042

REACTIONS (2)
  - DRUG INEFFECTIVE [None]
  - PRESCRIBED OVERDOSE [None]
